FAERS Safety Report 7679085-5 (Version None)
Quarter: 2011Q3

REPORT INFORMATION
  Report Type: 
  Country: None (occurrence: None)
  Receive Date: 20110812
  Receipt Date: 20110803
  Transmission Date: 20111222
  Serious: Yes (Other)
  Sender: FDA-Public Use
  Company Number: US-AMGEN-USASP2011039483

PATIENT
  Sex: Male

DRUGS (1)
  1. ENBREL [Suspect]
     Indication: PSORIASIS
     Dosage: 25 MG, UNK
     Dates: start: 19960101

REACTIONS (5)
  - PSORIASIS [None]
  - PRURITUS GENERALISED [None]
  - MOBILITY DECREASED [None]
  - DEPRESSION [None]
  - ALOPECIA [None]
